FAERS Safety Report 10987039 (Version 1)
Quarter: 2015Q2

REPORT INFORMATION
  Report Type: Spontaneous
  Country: US (occurrence: US)
  Receive Date: 20150404
  Receipt Date: 20150404
  Transmission Date: 20150821
  Serious: No
  Sender: FDA-Public Use
  Company Number: US-SA-2015SA026125

PATIENT
  Age: 66 Year
  Sex: Female

DRUGS (1)
  1. ALLEGRA-D [Suspect]
     Active Substance: FEXOFENADINE\PSEUDOEPHEDRINE
     Indication: SEASONAL ALLERGY
     Dosage: TAKEN: 15 DAYS
     Route: 048

REACTIONS (3)
  - Drug ineffective [Unknown]
  - Paranasal sinus discomfort [Unknown]
  - Medication residue present [Unknown]
